FAERS Safety Report 4597658-3 (Version None)
Quarter: 2005Q1

REPORT INFORMATION
  Report Type: 
  Country: None (occurrence: None)
  Receive Date: 20050303
  Receipt Date: 20050217
  Transmission Date: 20050727
  Serious: Yes (Other)
  Sender: FDA-Public Use
  Company Number: KR-GLAXOSMITHKLINE-B0372903A

PATIENT
  Sex: Male

DRUGS (1)
  1. LAMICTAL [Suspect]
     Indication: HEPATITIS B
     Dosage: 100MG UNKNOWN
     Route: 065

REACTIONS (2)
  - ASCITES [None]
  - MEDICATION ERROR [None]
